FAERS Safety Report 9198783 (Version 5)
Quarter: 2013Q3

REPORT INFORMATION
  Report Type: Spontaneous
  Country: US (occurrence: US)
  Receive Date: 20130329
  Receipt Date: 20130807
  Transmission Date: 20140515
  Serious: Yes (Hospitalization)
  Sender: FDA-Public Use
  Company Number: US-PFIZER INC-2013095250

PATIENT
  Age: 61 Year
  Sex: Female

DRUGS (4)
  1. XALATAN [Suspect]
     Dosage: 1 GTT OU (BOTH EYES), 2X/DAY (QHS)
     Route: 047
  2. ENALAPRIL [Concomitant]
     Dosage: 5 MG, 1X/DAY
  3. CRESTOR [Concomitant]
     Dosage: 20 MG, 1X/DAY
  4. AMLODIPINE [Concomitant]
     Dosage: 10 MG, 1X/DAY

REACTIONS (2)
  - Heart rate irregular [Unknown]
  - Incorrect dose administered [Unknown]
